FAERS Safety Report 6081492-1 (Version None)
Quarter: 2009Q1

REPORT INFORMATION
  Report Type: 
  Country: None (occurrence: None)
  Receive Date: 20090213
  Receipt Date: 20090129
  Transmission Date: 20090719
  Serious: Yes (Other)
  Sender: FDA-Public Use
  Company Number: 2009EN000026

PATIENT
  Age: 2 Month
  Sex: Female

DRUGS (1)
  1. ADAGEN [Suspect]
     Indication: IMMUNODEFICIENCY

REACTIONS (6)
  - DIARRHOEA [None]
  - DISEASE RECURRENCE [None]
  - FAILURE TO THRIVE [None]
  - MENINGITIS ASEPTIC [None]
  - RESPIRATORY TRACT INFECTION [None]
  - VARICELLA [None]
